FAERS Safety Report 7971548-8 (Version None)
Quarter: 2011Q4

REPORT INFORMATION
  Report Type: 
  Country: None (occurrence: None)
  Receive Date: 20111212
  Receipt Date: 20111201
  Transmission Date: 20120403
  Serious: Yes (Hospitalization)
  Sender: FDA-Public Use
  Company Number: US-ASTRAZENECA-2010SE24503

PATIENT
  Sex: Female
  Weight: 122.9 kg

DRUGS (2)
  1. RHINOCORT [Suspect]
     Route: 045
  2. NEXIUM [Suspect]
     Route: 048

REACTIONS (8)
  - GENERAL PHYSICAL HEALTH DETERIORATION [None]
  - WRONG DRUG ADMINISTERED [None]
  - TREATMENT NONCOMPLIANCE [None]
  - INCORRECT DOSE ADMINISTERED [None]
  - SELF-MEDICATION [None]
  - BEDRIDDEN [None]
  - DRUG DOSE OMISSION [None]
  - INAPPROPRIATE SCHEDULE OF DRUG ADMINISTRATION [None]
